FAERS Safety Report 15820599 (Version 1)
Quarter: 2018Q4

REPORT INFORMATION
  Report Type: Spontaneous
  Country: US (occurrence: US)
  Receive Date: 20181217
  Receipt Date: 20181217
  Transmission Date: 20190205
  Serious: Yes (Other)
  Sender: FDA-Public Use
  Company Number: None

PATIENT
  Age: 50 Year
  Sex: Female
  Weight: 44.45 kg

DRUGS (18)
  1. FENTANYL. [Suspect]
     Active Substance: FENTANYL
     Dosage: ?          QUANTITY:25 UG MICROGRAM(S);OTHER FREQUENCY:EVERY 72 HRS;?
     Dates: start: 20181013
  2. HYDROCO/APP [Concomitant]
  3. FENTANYL SYSTEM [Suspect]
     Active Substance: FENTANYL
     Indication: PAIN
     Dosage: ?          OTHER FREQUENCY:EVERY 48 HRS;OTHER ROUTE:PATCH ON SKIN?
     Dates: start: 20181009
  4. CARVEDILOL. [Concomitant]
     Active Substance: CARVEDILOL
  5. EZETIMIBE. [Concomitant]
     Active Substance: EZETIMIBE
  6. NITROFUR MAC CAP [Concomitant]
  7. DRONABINOL. [Concomitant]
     Active Substance: DRONABINOL
  8. NEXCARE [Concomitant]
  9. VALSARTIN [Concomitant]
     Active Substance: VALSARTAN
  10. PANTOPRAZOLE [Concomitant]
     Active Substance: PANTOPRAZOLE
  11. VITAMIN E [Concomitant]
     Active Substance: .ALPHA.-TOCOPHEROL
  12. NITRO TAB [Concomitant]
  13. ONDANSETRON [Concomitant]
     Active Substance: ONDANSETRON
  14. ATORVASTATIN [Concomitant]
     Active Substance: ATORVASTATIN
  15. CLONAZOPAM [Concomitant]
     Active Substance: CLONAZEPAM
  16. CREON [Concomitant]
     Active Substance: PANCRELIPASE AMYLASE\PANCRELIPASE LIPASE\PANCRELIPASE PROTEASE
  17. ASPIRIN. [Concomitant]
     Active Substance: ASPIRIN
  18. FENTANYL TRANSDERMAL SYSTEM [Concomitant]
     Active Substance: FENTANYL

REACTIONS (5)
  - Product complaint [None]
  - Product adhesion issue [None]
  - Manufacturing materials issue [None]
  - Therapeutic product ineffective [None]
  - Pain [None]

NARRATIVE: CASE EVENT DATE: 20181009
